FAERS Safety Report 17285825 (Version 1)
Quarter: 2020Q1

REPORT INFORMATION
  Report Type: Report from Study
  Country: US (occurrence: US)
  Receive Date: 20200118
  Receipt Date: 20200118
  Transmission Date: 20200409
  Serious: Yes (Other)
  Sender: FDA-Public Use
  Company Number: US-ROCHE-2519527

PATIENT

DRUGS (4)
  1. ACTEMRA [Suspect]
     Active Substance: TOCILIZUMAB
     Indication: RHEUMATOID ARTHRITIS
     Dosage: INJECT 162 MG SUBCUTANEOUSLY EVERY 2 WEEKS
     Route: 058
  2. ACTEMRA [Suspect]
     Active Substance: TOCILIZUMAB
     Indication: MYALGIA
  3. ACTEMRA [Suspect]
     Active Substance: TOCILIZUMAB
     Indication: CUTANEOUS LUPUS ERYTHEMATOSUS
  4. ACTEMRA [Suspect]
     Active Substance: TOCILIZUMAB
     Indication: ARTHRALGIA

REACTIONS (1)
  - Systemic lupus erythematosus [Unknown]
